FAERS Safety Report 25356134 (Version 1)
Quarter: 2025Q2

REPORT INFORMATION
  Report Type: Spontaneous
  Country: DE (occurrence: DE)
  Receive Date: 20250525
  Receipt Date: 20250525
  Transmission Date: 20250717
  Serious: Yes (Other)
  Sender: ALEXION PHARMACEUTICALS
  Company Number: DE-SANDOZ-SDZ2025DE028782

PATIENT
  Age: 53 Year

DRUGS (2)
  1. ROSUVASTATIN [Suspect]
     Active Substance: ROSUVASTATIN
     Indication: Product used for unknown indication
     Route: 065
  2. KISQALI [Suspect]
     Active Substance: RIBOCICLIB SUCCINATE
     Indication: Product used for unknown indication
     Dosage: 400 MILLIGRAM, 1/DAY

REACTIONS (5)
  - Leukopenia [Unknown]
  - Diabetes mellitus [Unknown]
  - Skin disorder [Unknown]
  - Asthenia [Unknown]
  - Constipation [Unknown]
